FAERS Safety Report 22294508 (Version 2)
Quarter: 2024Q2

REPORT INFORMATION
  Report Type: Spontaneous
  Country: US (occurrence: US)
  Receive Date: 20230508
  Receipt Date: 20240415
  Transmission Date: 20240716
  Serious: Yes (Other)
  Sender: FDA-Public Use
  Company Number: US-ASTELLAS-2022US032021

PATIENT
  Age: 60 Year
  Sex: Male

DRUGS (4)
  1. LEXISCAN [Suspect]
     Active Substance: REGADENOSON
     Indication: Cardiac stress test
     Dosage: 1 DF, OTHER (ONE DOSE)
     Route: 065
     Dates: start: 20220829, end: 20220829
  2. LEXISCAN [Suspect]
     Active Substance: REGADENOSON
     Indication: Cardiac stress test
     Dosage: 1 DF, OTHER (ONE DOSE)
     Route: 065
     Dates: start: 20220829, end: 20220829
  3. LEXISCAN [Suspect]
     Active Substance: REGADENOSON
     Indication: Cardiac stress test
     Dosage: 1 DF, OTHER (ONE DOSE)
     Route: 065
     Dates: start: 20220829, end: 20220829
  4. LEXISCAN [Suspect]
     Active Substance: REGADENOSON
     Indication: Cardiac stress test
     Dosage: 1 DF, OTHER (ONE DOSE)
     Route: 065
     Dates: start: 20220829, end: 20220829

REACTIONS (3)
  - Cerebrovascular accident [Unknown]
  - Chest pain [Unknown]
  - Hypertension [Unknown]

NARRATIVE: CASE EVENT DATE: 20220829
